FAERS Safety Report 13123384 (Version 1)
Quarter: 2017Q1

REPORT INFORMATION
  Report Type: Report from Study
  Country: US (occurrence: US)
  Receive Date: 20170117
  Receipt Date: 20170117
  Transmission Date: 20170428
  Serious: Yes (Hospitalization, Other)
  Sender: FDA-Public Use
  Company Number: US-BRISTOL-MYERS SQUIBB COMPANY-BMS-2017-000959

PATIENT
  Age: 66 Year
  Sex: Male
  Weight: 87.75 kg

DRUGS (17)
  1. ALKA-SELTZER PLUS COLD             /00446801/ [Concomitant]
     Indication: UPPER RESPIRATORY TRACT INFECTION
     Dosage: UNK
     Route: 048
     Dates: start: 20161230, end: 20170102
  2. TYLENOL COLD + FLU [Concomitant]
     Active Substance: ACETAMINOPHEN\DEXTROMETHORPHAN\PSEUDOEPHEDRINE
     Indication: UPPER RESPIRATORY TRACT INFECTION
     Dosage: 325 MG, UNK
     Route: 048
     Dates: start: 20170103
  3. NORVASC [Concomitant]
     Active Substance: AMLODIPINE BESYLATE
     Indication: HYPERTENSION
     Dosage: 5 MG, QD
     Route: 048
     Dates: start: 20170104
  4. COZAAR [Concomitant]
     Active Substance: LOSARTAN POTASSIUM
     Indication: HYPERTENSION
     Dosage: 100 MG, QD
     Route: 048
     Dates: start: 2011
  5. XANAX [Concomitant]
     Active Substance: ALPRAZOLAM
     Indication: ANXIETY
     Dosage: 0.5 MG, PRN, THERAPY DATE: 02/JAN/2017
     Route: 048
     Dates: start: 201506
  6. TESTOSTERONE. [Concomitant]
     Active Substance: TESTOSTERONE
     Indication: HORMONE REPLACEMENT THERAPY
     Dosage: DOSAGE: WEEKLY, ALSO ON DEC2016
     Route: 030
     Dates: start: 20160418
  7. FPA008 [Suspect]
     Active Substance: CABIRALIZUMAB
     Indication: NEOPLASM MALIGNANT
     Dosage: 4 MG/KG, Q2WK, DOSAGE: 350MG
     Route: 042
     Dates: start: 20161228
  8. METAMUCIL [Concomitant]
     Active Substance: PLANTAGO SEED
     Indication: FAECES SOFT
     Dosage: 1 DF: 1TSP, QD, ALSO ON 04/JAN/2017
     Route: 048
     Dates: start: 2015
  9. NIVOLUMAB [Suspect]
     Active Substance: NIVOLUMAB
     Indication: NEOPLASM MALIGNANT
     Dosage: 3 MG/KG, Q2WK, DOSAGE: 350MG
     Route: 042
     Dates: start: 20161228
  10. PROTONIX                           /00661201/ [Concomitant]
     Active Substance: OMEPRAZOLE
     Indication: DYSPHAGIA
     Dosage: 40 MG, ALSO ON 03/JAN/2017
     Route: 048
     Dates: start: 20161225
  11. HYZAAR [Concomitant]
     Active Substance: HYDROCHLOROTHIAZIDE\LOSARTAN POTASSIUM
     Indication: PRODUCT USED FOR UNKNOWN INDICATION
     Dosage: 1 DF: 100-25 UNIT NOS
     Route: 065
  12. ZOFRAN [Concomitant]
     Active Substance: ONDANSETRON HYDROCHLORIDE
     Indication: NAUSEA
     Dosage: 8 MG, PRN, DOSAGE: EVERY 8HOURS
     Route: 048
  13. TYLENOL EXTRA STRENGTH [Concomitant]
     Active Substance: ACETAMINOPHEN
     Indication: PROPHYLAXIS
     Dosage: 1 DF: 300-30MG, PRN
     Route: 048
     Dates: start: 2006
  14. ZOFRAN [Concomitant]
     Active Substance: ONDANSETRON HYDROCHLORIDE
     Indication: VOMITING
     Route: 065
  15. AMBIEN [Concomitant]
     Active Substance: ZOLPIDEM TARTRATE
     Indication: INSOMNIA
     Dosage: 10 MG, PRN, DOSAGE: 1TAB, 02/JAN/2017
     Route: 048
     Dates: start: 201501
  16. UREACIN [Concomitant]
     Indication: UPPER RESPIRATORY TRACT INFECTION
     Dosage: 1 DF: 20-20 %, DOSAGE: 3/DAY
     Route: 061
  17. ADVAIR HFA [Concomitant]
     Active Substance: FLUTICASONE PROPIONATE\SALMETEROL XINAFOATE
     Indication: COUGH
     Dosage: 1 DF: 250-25  MCG, ALSO ON 04/JAN/2017
     Route: 055
     Dates: start: 20161003

REACTIONS (1)
  - Bundle branch block right [Not Recovered/Not Resolved]

NARRATIVE: CASE EVENT DATE: 20170104
